FAERS Safety Report 8623486-5 (Version None)
Quarter: 2012Q3

REPORT INFORMATION
  Report Type: 
  Country: None (occurrence: None)
  Receive Date: 20120827
  Receipt Date: 20120816
  Transmission Date: 20120928
  Serious: Yes (Other)
  Sender: FDA-Public Use
  Company Number: CN-ASTRAZENECA-2011SE33293

PATIENT
  Age: 6 Year
  Sex: Male
  Weight: 15 kg

DRUGS (2)
  1. SYMBICORT [Suspect]
     Dosage: 80 UG DAILY
     Route: 055
     Dates: start: 20110524, end: 20110524
  2. SYMBICORT [Suspect]
     Indication: ASTHMA
     Dosage: 160/90 UG  BID
     Route: 055

REACTIONS (3)
  - DRUG HYPERSENSITIVITY [None]
  - LACTOSE INTOLERANCE [None]
  - DYSPNOEA [None]
